FAERS Safety Report 8899782 (Version 1)
Quarter: 2012Q4

REPORT INFORMATION
  Report Type: 
  Country: IT (occurrence: IT)
  Receive Date: 20121109
  Receipt Date: 20121109
  Transmission Date: 20130627
  Serious: Yes (Hospitalization)
  Sender: FDA-Public Use
  Company Number: IT-SANOFI-AVENTIS-2012SA081929

PATIENT
  Age: 84 Year
  Sex: Female

DRUGS (4)
  1. SOLOSA [Suspect]
     Indication: DIABETES MELLITUS
     Route: 048
     Dates: start: 20100101, end: 20120922
  2. METFORAL [Suspect]
     Indication: DIABETES MELLITUS
     Route: 048
     Dates: start: 20100101, end: 20120922
  3. PARNAPARIN SODIUM [Concomitant]
     Indication: FEMUR FRACTURE
     Route: 058
     Dates: start: 20120918, end: 20120922
  4. CARVEDILOL [Concomitant]
     Indication: HYPERTENSION
     Dosage: satrt date: 4 years
     Route: 048

REACTIONS (2)
  - Iron deficiency anaemia [Recovering/Resolving]
  - Hypoglycaemia [Recovering/Resolving]
